FAERS Safety Report 8679269 (Version 13)
Quarter: 2013Q1

REPORT INFORMATION
  Report Type: Spontaneous
  Country: GB (occurrence: GB)
  Receive Date: 20120724
  Receipt Date: 20130311
  Transmission Date: 20140127
  Serious: Yes (Death, Hospitalization)
  Sender: FDA-Public Use
  Company Number: PHFR2012GB004080

PATIENT
  Age: 58 Year
  Sex: Male

DRUGS (11)
  1. CLOZARIL [Suspect]
     Indication: SCHIZOPHRENIA
     Route: 048
     Dates: start: 20010701, end: 20120718
  2. CLOZARIL [Suspect]
     Dosage: UNK UKN, UNK
     Route: 048
     Dates: start: 20120721
  3. CLOZARIL [Suspect]
     Dosage: 150 MG, DAILY
     Route: 048
  4. EPIRUBICIN [Suspect]
  5. OXALIPLATIN [Suspect]
  6. CAPECITABINE [Suspect]
  7. HALOPERIDOL [Concomitant]
     Indication: SCHIZOPHRENIA
     Dosage: 5 MG, DAILY
     Route: 048
  8. PROCYCLIDINE [Concomitant]
     Indication: EXTRAPYRAMIDAL DISORDER
     Dosage: 10 MG, UNK
     Route: 048
  9. THIAMIN [Concomitant]
     Indication: VOMITING
     Dosage: 100 MG
     Route: 048
  10. DALIVIT [Concomitant]
     Indication: VOMITING
     Dosage: 0.6 ML
     Route: 048
  11. MOVICARD ORR POWDER [Concomitant]
     Indication: GASTRIC CANCER
     Dosage: UNK UKN, UNK
     Route: 048

REACTIONS (10)
  - Adenocarcinoma gastric [Fatal]
  - Obstruction gastric [Fatal]
  - Weight decreased [Recovered/Resolved with Sequelae]
  - Malaise [Unknown]
  - Diarrhoea [Recovered/Resolved with Sequelae]
  - Vomiting [Recovered/Resolved with Sequelae]
  - Differential white blood cell count abnormal [Unknown]
  - Neutrophil count decreased [Unknown]
  - Platelet count decreased [Unknown]
  - White blood cell count increased [Unknown]
